FAERS Safety Report 18053881 (Version 2)
Quarter: 2020Q3

REPORT INFORMATION
  Report Type: Spontaneous
  Country: DE (occurrence: DE)
  Receive Date: 20200722
  Receipt Date: 20200723
  Transmission Date: 20201103
  Serious: Yes (Other)
  Sender: FDA-Public Use
  Company Number: DE-MACLEODS PHARMACEUTICALS US LTD-MAC2020027357

PATIENT

DRUGS (24)
  1. BENDAMUSTINE [Suspect]
     Active Substance: BENDAMUSTINE
     Indication: CHRONIC LYMPHOCYTIC LEUKAEMIA
     Dosage: UNK, EVERY
     Route: 065
  2. PREDNICARBATE 2.5 MG/G [Suspect]
     Active Substance: PREDNICARBATE
     Indication: NEURODERMATITIS
     Dosage: UNK
     Route: 061
  3. PREDNISOLONE 40 MG [Suspect]
     Active Substance: PREDNISOLONE
     Indication: NEURODERMATITIS
     Dosage: 40 MILLIGRAM, QD, EVERY 1 DAY
     Route: 048
  4. LAUROMACROGOL 400 [Concomitant]
     Active Substance: POLIDOCANOL
     Dosage: UNK, OINTMENT
     Route: 065
  5. NALOXONE [Concomitant]
     Active Substance: NALOXONE
     Indication: NEURODERMATITIS
     Dosage: 1.2 MILLIGRAM, EVERY 7 CYCLE
     Route: 042
  6. CLOBETASOL [Suspect]
     Active Substance: CLOBETASOL
     Indication: DERMATITIS ATOPIC
     Dosage: UNK, 0.5 MG/G
     Route: 061
  7. GABAPENTIN. [Concomitant]
     Active Substance: GABAPENTIN
     Indication: NEURODERMATITIS
     Dosage: UNK, UP TO 900 MG/D
     Route: 065
  8. MOMETASONE [Suspect]
     Active Substance: MOMETASONE
     Indication: NEURODERMATITIS
     Dosage: UNK, MOMETASONE FUROATE 1 MG/G
     Route: 061
  9. BETAMETHASONE. [Suspect]
     Active Substance: BETAMETHASONE
     Indication: DERMATITIS ATOPIC
     Dosage: UNK
     Route: 061
  10. METHOTREXATE. [Suspect]
     Active Substance: METHOTREXATE
     Indication: NEURODERMATITIS
     Dosage: 10 MILLIGRAM, Q.W.
     Route: 065
  11. GABAPENTIN. [Concomitant]
     Active Substance: GABAPENTIN
     Dosage: 900 MILLIGRAM, QD
     Route: 065
  12. RITUXIMAB. [Suspect]
     Active Substance: RITUXIMAB
     Indication: CHRONIC LYMPHOCYTIC LEUKAEMIA
     Dosage: UNK
     Route: 065
  13. PAROXETINE. [Concomitant]
     Active Substance: PAROXETINE
     Indication: ANTIDEPRESSANT THERAPY
     Dosage: 20 MILLIGRAM, QD
     Route: 065
  14. LAUROMACROGOL 400 [Concomitant]
     Active Substance: POLIDOCANOL
     Indication: NEURODERMATITIS
     Dosage: UNK, CREAMS
     Route: 065
  15. NALTREXONE [Concomitant]
     Active Substance: NALTREXONE
     Indication: NEURODERMATITIS
     Dosage: 25 MILLIGRAM, QD, EVERY 1 DAY
     Route: 065
  16. HYDROXYZINE [Concomitant]
     Active Substance: HYDROXYZINE HYDROCHLORIDE
     Indication: NEURODERMATITIS
     Dosage: 25 MILLIGRAM, QD
     Route: 065
  17. CICLOSPORIN [Suspect]
     Active Substance: CYCLOSPORINE
     Indication: NEURODERMATITIS
     Dosage: 300 MILLIGRAM, QD
     Route: 065
  18. MIRTAZAPINE. [Concomitant]
     Active Substance: MIRTAZAPINE
     Indication: ANTIDEPRESSANT THERAPY
     Dosage: 15 MILLIGRAM, QD, EVERY 1 DAY
     Route: 065
  19. BETAMETHASONE VALERATE. [Suspect]
     Active Substance: BETAMETHASONE VALERATE
     Indication: NEURODERMATITIS
     Dosage: UNK
     Route: 061
  20. CICLOSPORIN [Suspect]
     Active Substance: CYCLOSPORINE
     Dosage: 100 MILLIGRAM, CYCLOSPORINE A
     Route: 065
  21. PIMECROLIMUS. [Suspect]
     Active Substance: PIMECROLIMUS
     Indication: NEURODERMATITIS
     Dosage: UNK
     Route: 061
  22. TACROLIMUS. [Suspect]
     Active Substance: TACROLIMUS
     Indication: NEURODERMATITIS
     Dosage: UNK
     Route: 061
  23. DESLORATADINE. [Concomitant]
     Active Substance: DESLORATADINE
     Indication: NEURODERMATITIS
     Dosage: 20 MILLIGRAM, QD
     Route: 065
  24. CETIRIZINE [Concomitant]
     Active Substance: CETIRIZINE HYDROCHLORIDE
     Indication: NEURODERMATITIS
     Dosage: 60 MILLIGRAM, QD
     Route: 065

REACTIONS (1)
  - Intraductal papillary mucinous neoplasm [Unknown]
